FAERS Safety Report 7455653-0 (Version None)
Quarter: 2011Q2

REPORT INFORMATION
  Report Type: 
  Country: None (occurrence: None)
  Receive Date: 20110503
  Receipt Date: 20110419
  Transmission Date: 20111010
  Serious: Yes (Hospitalization)
  Sender: FDA-Public Use
  Company Number: PT-WATSON-2011-03886

PATIENT
  Age: 56 Year
  Sex: Female

DRUGS (1)
  1. PENICILLIN G POTASSIUM [Suspect]
     Indication: ENDOCARDITIS
     Dosage: 24 MU/DAY
     Route: 065

REACTIONS (1)
  - AGRANULOCYTOSIS [None]
